FAERS Safety Report 13034796 (Version 1)
Quarter: 2016Q4

REPORT INFORMATION
  Report Type: Spontaneous
  Country: US (occurrence: US)
  Receive Date: 20161216
  Receipt Date: 20161216
  Transmission Date: 20170207
  Serious: No
  Sender: FDA-Public Use
  Company Number: US-BAUSCH-BL-2016-026836

PATIENT
  Age: 74 Year
  Sex: Female

DRUGS (1)
  1. TIMOLOL GEL FORMING SOLUTION [Suspect]
     Active Substance: TIMOLOL
     Indication: GLAUCOMA
     Route: 047
     Dates: start: 2015

REACTIONS (2)
  - Erythema [Recovering/Resolving]
  - Rash pruritic [Recovering/Resolving]

NARRATIVE: CASE EVENT DATE: 201610
